FAERS Safety Report 6735539-7 (Version None)
Quarter: 2010Q2

REPORT INFORMATION
  Report Type: 
  Country: None (occurrence: None)
  Receive Date: 20100521
  Receipt Date: 20100512
  Transmission Date: 20101027
  Serious: Yes (Hospitalization)
  Sender: FDA-Public Use
  Company Number: US-ELI_LILLY_AND_COMPANY-US201005000091

PATIENT
  Sex: Male
  Weight: 54.48 kg

DRUGS (12)
  1. PEMETREXED [Suspect]
     Indication: NON-SMALL CELL LUNG CANCER STAGE IV
     Dosage: 500 MG/M2, OTHER
     Route: 042
     Dates: start: 20090824, end: 20091020
  2. PEMETREXED [Suspect]
     Dosage: 500 MG/M2, OTHER
     Route: 042
     Dates: start: 20091116, end: 20100412
  3. CARBOPLATIN [Suspect]
     Indication: NON-SMALL CELL LUNG CANCER STAGE IV
     Dosage: 6 D/F, OTHER
     Route: 042
     Dates: start: 20090824, end: 20091020
  4. BEVACIZUMAB [Suspect]
     Indication: NON-SMALL CELL LUNG CANCER STAGE IV
     Dosage: 15 MG/KG, OTHER
     Route: 042
     Dates: start: 20090824, end: 20091020
  5. BEVACIZUMAB [Suspect]
     Dosage: 15 MG/KG, OTHER
     Route: 042
     Dates: start: 20091116, end: 20100412
  6. ACCURETIC [Concomitant]
     Indication: HYPERTENSION
     Dosage: 1 D/F, UNK
     Dates: end: 20100427
  7. COMBIVENT [Concomitant]
     Indication: BRONCHOSPASM
     Route: 055
  8. K-DUR [Concomitant]
     Indication: MINERAL SUPPLEMENTATION
     Dosage: 20 MEQ, UNK
     Dates: end: 20100427
  9. LIPITOR [Concomitant]
     Indication: HYPERLIPIDAEMIA
     Dosage: 10 MG, UNK
  10. METOPROLOL TARTRATE [Concomitant]
     Indication: HYPERTENSION
     Dates: end: 20100427
  11. METOPROLOL TARTRATE [Concomitant]
     Dosage: 12.5 MG, 2/D
     Dates: start: 20100501
  12. PERCOCET [Concomitant]
     Indication: PAIN
     Dates: start: 20100101, end: 20100427

REACTIONS (1)
  - HAEMOPTYSIS [None]
